FAERS Safety Report 25483646 (Version 2)
Quarter: 2025Q3

REPORT INFORMATION
  Report Type: Spontaneous
  Country: US (occurrence: US)
  Receive Date: 20250626
  Receipt Date: 20250703
  Transmission Date: 20251021
  Serious: No
  Sender: VERTEX
  Company Number: US-VERTEX PHARMACEUTICALS-2025-009934

PATIENT
  Age: 86 Year
  Sex: Male

DRUGS (2)
  1. JOURNAVX [Suspect]
     Active Substance: SUZETRIGINE
     Indication: Spinal osteoarthritis
     Route: 048
  2. JOURNAVX [Suspect]
     Active Substance: SUZETRIGINE
     Indication: Neck pain

REACTIONS (4)
  - Cognitive disorder [Unknown]
  - Paranoia [Unknown]
  - Anxiety [Unknown]
  - Off label use [Unknown]
